FAERS Safety Report 4651996-4 (Version None)
Quarter: 2005Q2

REPORT INFORMATION
  Report Type: 
  Country: None (occurrence: None)
  Receive Date: 20050502
  Receipt Date: 20050420
  Transmission Date: 20051028
  Serious: Yes (Hospitalization, Other)
  Sender: FDA-Public Use
  Company Number: 800351

PATIENT
  Sex: Female

DRUGS (2)
  1. DIANEAL PD-2 W/ DEXTROSE 1.5% [Suspect]
     Dosage: INTRAPERITONEAL
     Route: 033
  2. IRON PILLS [Concomitant]

REACTIONS (3)
  - DEHYDRATION [None]
  - PERITONITIS [None]
  - RASH [None]
